FAERS Safety Report 12484445 (Version 5)
Quarter: 2016Q3

REPORT INFORMATION
  Report Type: Spontaneous
  Country: TW (occurrence: TW)
  Receive Date: 20160621
  Receipt Date: 20160926
  Transmission Date: 20161109
  Serious: Yes (Hospitalization)
  Sender: FDA-Public Use
  Company Number: TW-PFIZER INC-2016279002

PATIENT
  Age: 57 Year
  Sex: Female

DRUGS (2)
  1. SUTENT [Suspect]
     Active Substance: SUNITINIB MALATE
     Indication: GASTROINTESTINAL STROMAL TUMOUR
     Dosage: 37.5 MG, ONCE DAILY
     Route: 048
     Dates: start: 20160507, end: 20160722
  2. SUTENT [Suspect]
     Active Substance: SUNITINIB MALATE
     Dosage: 12.5 MG, 1X/DAY
     Route: 048
     Dates: start: 20160819, end: 20160915

REACTIONS (13)
  - Decreased appetite [Recovering/Resolving]
  - Weight decreased [Unknown]
  - Nausea [Recovering/Resolving]
  - Glossodynia [Recovering/Resolving]
  - Gastrooesophageal reflux disease [Recovering/Resolving]
  - Gastrointestinal stromal tumour [Unknown]
  - Ascites [Recovering/Resolving]
  - Gingival bleeding [Recovering/Resolving]
  - Palmar-plantar erythrodysaesthesia syndrome [Recovering/Resolving]
  - Hypogeusia [Recovering/Resolving]
  - Mouth ulceration [Recovering/Resolving]
  - Dry mouth [Recovering/Resolving]
  - Disease recurrence [Unknown]

NARRATIVE: CASE EVENT DATE: 2016
